FAERS Safety Report 5139303-4 (Version None)
Quarter: 2006Q4

REPORT INFORMATION
  Report Type: 
  Country: None (occurrence: None)
  Receive Date: 20061024
  Receipt Date: 20061020
  Transmission Date: 20070319
  Serious: Yes (Disabling)
  Sender: FDA-Public Use
  Company Number: 06H-163-0310406-00

PATIENT
  Age: 16 Year
  Sex: Male

DRUGS (2)
  1. MARCAINE [Suspect]
     Indication: PAIN
  2. STEROIDS (CORTICOSTEROIDS) [Suspect]
     Indication: PAIN

REACTIONS (2)
  - CHONDROLYSIS [None]
  - SYNOVITIS [None]
